FAERS Safety Report 23794858 (Version 1)
Quarter: 2024Q2

REPORT INFORMATION
  Report Type: Spontaneous
  Country: AT (occurrence: AT)
  Receive Date: 20240429
  Receipt Date: 20240429
  Transmission Date: 20240716
  Serious: Yes (Hospitalization, Other)
  Sender: FDA-Public Use
  Company Number: AT-GLAXOSMITHKLINE-AT2024EME053075

PATIENT

DRUGS (3)
  1. OJJAARA [Suspect]
     Active Substance: MOMELOTINIB DIHYDROCHLORIDE MONOHYDRATE
     Indication: Product used for unknown indication
     Dosage: 200 MG, QD
     Dates: start: 20230704, end: 20240112
  2. OJJAARA [Suspect]
     Active Substance: MOMELOTINIB DIHYDROCHLORIDE MONOHYDRATE
     Dosage: 150 MG, QD
     Dates: start: 20240112, end: 20240123
  3. OJJAARA [Suspect]
     Active Substance: MOMELOTINIB DIHYDROCHLORIDE MONOHYDRATE
     Dosage: 200 MG, QD
     Dates: start: 20240123

REACTIONS (6)
  - Oedema [Unknown]
  - Cardiac failure acute [Unknown]
  - Dyspnoea [Unknown]
  - Weight increased [Unknown]
  - Fatigue [Unknown]
  - Weight decreased [Unknown]

NARRATIVE: CASE EVENT DATE: 20240205
